FAERS Safety Report 7045765-8 (Version None)
Quarter: 2010Q4

REPORT INFORMATION
  Report Type: 
  Country: None (occurrence: None)
  Receive Date: 20101014
  Receipt Date: 20101005
  Transmission Date: 20110411
  Serious: Yes (Other)
  Sender: FDA-Public Use
  Company Number: DE-ASTRAZENECA-2010SE48219

PATIENT
  Age: 69 Year
  Sex: Male

DRUGS (1)
  1. BELOC-ZOK COMP [Suspect]
     Route: 048
     Dates: start: 19950101

REACTIONS (2)
  - ARTERIAL STENOSIS LIMB [None]
  - PERIPHERAL ARTERIAL OCCLUSIVE DISEASE [None]
